FAERS Safety Report 12692558 (Version 1)
Quarter: 2016Q3

REPORT INFORMATION
  Report Type: Spontaneous
  Country: GR (occurrence: GR)
  Receive Date: 20160829
  Receipt Date: 20160829
  Transmission Date: 20161109
  Serious: Yes (Other)
  Sender: FDA-Public Use
  Company Number: GR-JNJFOC-20160815552

PATIENT
  Age: 30 Year
  Sex: Male

DRUGS (2)
  1. REGAINE MEN SOLUTION 5 % [Suspect]
     Active Substance: MINOXIDIL
     Indication: ALOPECIA
     Dosage: 4-5 YEARS AGO
     Route: 065
  2. REGAINE MEN SOLUTION 5 % [Suspect]
     Active Substance: MINOXIDIL
     Route: 065

REACTIONS (3)
  - Bradycardia [Unknown]
  - Somnolence [Unknown]
  - Erectile dysfunction [Unknown]
